FAERS Safety Report 6610122-2 (Version None)
Quarter: 2010Q1

REPORT INFORMATION
  Report Type: 
  Country: None (occurrence: None)
  Receive Date: 20100302
  Receipt Date: 20100217
  Transmission Date: 20100710
  Serious: Yes (Hospitalization)
  Sender: FDA-Public Use
  Company Number: GB-WATSON-2010-02072

PATIENT
  Age: 98 Year
  Sex: Female

DRUGS (1)
  1. OMEPRAZOLE (WATSON LABORATORIES) [Suspect]
     Indication: GASTROOESOPHAGEAL REFLUX DISEASE
     Dosage: 10 MG, DAILY

REACTIONS (4)
  - GAIT DISTURBANCE [None]
  - HEADACHE [None]
  - HYPONATRAEMIA [None]
  - LETHARGY [None]
